FAERS Safety Report 9285832 (Version 1)
Quarter: 2013Q2

REPORT INFORMATION
  Report Type: Spontaneous
  Country: US (occurrence: US)
  Receive Date: 20130513
  Receipt Date: 20130513
  Transmission Date: 20140414
  Serious: No
  Sender: FDA-Public Use
  Company Number: US-PFIZER INC-2013146678

PATIENT
  Age: 82 Year
  Sex: Female

DRUGS (1)
  1. ADVIL [Suspect]
     Dosage: 200 MG, UNK

REACTIONS (1)
  - Malaise [Unknown]
